FAERS Safety Report 20469576 (Version 1)
Quarter: 2022Q1

REPORT INFORMATION
  Report Type: Report from Study
  Country: DZ (occurrence: DZ)
  Receive Date: 20220214
  Receipt Date: 20220214
  Transmission Date: 20220423
  Serious: Yes (Hospitalization)
  Sender: FDA-Public Use
  Company Number: DZ-AMGEN-DZASL2021186437

PATIENT
  Age: 55 Year
  Sex: Female

DRUGS (1)
  1. XGEVA [Suspect]
     Active Substance: DENOSUMAB
     Indication: Breast cancer
     Dosage: 120 MILLIGRAM, QMO
     Route: 065

REACTIONS (3)
  - Trismus [Unknown]
  - Loose tooth [Not Recovered/Not Resolved]
  - Dyskinesia [Not Recovered/Not Resolved]
